FAERS Safety Report 15814659 (Version 1)
Quarter: 2019Q1

REPORT INFORMATION
  Report Type: Spontaneous
  Country: US (occurrence: US)
  Receive Date: 20190111
  Receipt Date: 20190111
  Transmission Date: 20190417
  Serious: Yes (Other)
  Sender: FDA-Public Use
  Company Number: US-SA-2019SA007144

PATIENT
  Sex: Female

DRUGS (1)
  1. AMBIEN [Suspect]
     Active Substance: ZOLPIDEM TARTRATE
     Indication: POOR QUALITY SLEEP
     Dosage: UNK UNK, UNK
     Route: 065

REACTIONS (4)
  - Drug dependence [Unknown]
  - Amnesia [Unknown]
  - Fall [Unknown]
  - Dysarthria [Unknown]
